FAERS Safety Report 6538829-6 (Version None)
Quarter: 2010Q1

REPORT INFORMATION
  Report Type: 
  Country: None (occurrence: None)
  Receive Date: 20100115
  Receipt Date: 20100112
  Transmission Date: 20100710
  Serious: Yes (Death, Life-Threatening, Hospitalization)
  Sender: FDA-Public Use
  Company Number: JP-EISAI INC.-E2020-05348-CLI-JP

PATIENT
  Sex: Male
  Weight: 60 kg

DRUGS (5)
  1. ARICEPT [Suspect]
     Route: 048
     Dates: start: 20090331, end: 20090909
  2. TIARYL [Concomitant]
     Route: 048
     Dates: start: 20090220, end: 20090528
  3. TAKEPRON [Concomitant]
     Route: 048
     Dates: end: 20090908
  4. ALDACTONE [Concomitant]
     Indication: HYPERTENSION
     Route: 048
     Dates: end: 20090908
  5. LASIX [Concomitant]
     Indication: HYPERTENSION
     Route: 048
     Dates: end: 20090908

REACTIONS (3)
  - ATRIAL FIBRILLATION [None]
  - MELAENA [None]
  - PLEURAL EFFUSION [None]
